FAERS Safety Report 5467070-3 (Version None)
Quarter: 2007Q3

REPORT INFORMATION
  Report Type: 
  Country: None (occurrence: None)
  Receive Date: 20070925
  Receipt Date: 20070914
  Transmission Date: 20080115
  Serious: Yes (Other)
  Sender: FDA-Public Use
  Company Number: US-KINGPHARMUSA00001-K200701195

PATIENT

DRUGS (1)
  1. FLORINEF [Suspect]
     Indication: ADDISON'S DISEASE
     Route: 048
     Dates: start: 19900101

REACTIONS (3)
  - BLINDNESS [None]
  - DARK CIRCLES UNDER EYES [None]
  - DIZZINESS [None]
